FAERS Safety Report 6022719-1 (Version None)
Quarter: 2008Q4

REPORT INFORMATION
  Report Type: 
  Country: None (occurrence: None)
  Receive Date: 20081230
  Receipt Date: 20081125
  Transmission Date: 20090506
  Serious: Yes (Hospitalization)
  Sender: FDA-Public Use
  Company Number: US-BRISTOL-MYERS SQUIBB COMPANY-14414957

PATIENT
  Age: 6 Decade
  Sex: Female
  Weight: 69 kg

DRUGS (9)
  1. SPRYCEL [Suspect]
     Indication: CHRONIC MYELOID LEUKAEMIA
     Dosage: INITIALLY GIVEN 50MG QD
  2. HYDROXYUREA [Concomitant]
     Indication: CHRONIC MYELOID LEUKAEMIA
     Dosage: INITIALLY 1000MG QD
  3. SYNTHROID [Concomitant]
  4. LISINOPRIL [Concomitant]
  5. NEURONTIN [Concomitant]
  6. VISTARIL [Concomitant]
  7. CELEBREX [Concomitant]
  8. ALLOPURINOL [Concomitant]
  9. DURAGESIC-100 [Concomitant]

REACTIONS (3)
  - CONTUSION [None]
  - MOUTH HAEMORRHAGE [None]
  - PLATELET COUNT DECREASED [None]
